FAERS Safety Report 8004494-4 (Version None)
Quarter: 2011Q4

REPORT INFORMATION
  Report Type: 
  Country: None (occurrence: None)
  Receive Date: 20111221
  Receipt Date: 20111221
  Transmission Date: 20120403
  Serious: Yes (Hospitalization)
  Sender: FDA-Public Use
  Company Number: None

PATIENT
  Age: 58 Year
  Sex: Male
  Weight: 59 kg

DRUGS (13)
  1. COUMADIN [Suspect]
     Indication: CORONARY ARTERY DISEASE
     Dosage: PO CHRONIC
     Route: 048
  2. CLARITIN [Concomitant]
  3. VIT C [Concomitant]
  4. DILAUDID [Concomitant]
  5. DUONEB [Concomitant]
  6. ATORVASTATIN [Concomitant]
  7. MECLIZINE [Concomitant]
  8. CLONAZEPAM [Concomitant]
  9. NERCO [Concomitant]
  10. FOLIC ACID [Concomitant]
  11. LEVAQUIN [Suspect]
     Indication: PNEUMONIA
     Dosage: 500MG Q24HR IVPB
     Route: 042
  12. BRIMONIDINE TARTRATE [Concomitant]
  13. COREG [Concomitant]

REACTIONS (7)
  - INTERNATIONAL NORMALISED RATIO DECREASED [None]
  - ANAEMIA [None]
  - INTERNATIONAL NORMALISED RATIO INCREASED [None]
  - TROPONIN INCREASED [None]
  - MALNUTRITION [None]
  - PNEUMONIA [None]
  - GASTROINTESTINAL HAEMORRHAGE [None]
